FAERS Safety Report 7119276-5 (Version None)
Quarter: 2010Q4

REPORT INFORMATION
  Report Type: 
  Country: None (occurrence: None)
  Receive Date: 20101123
  Receipt Date: 20101108
  Transmission Date: 20110411
  Serious: No
  Sender: FDA-Public Use
  Company Number: US-BAYER-201023548BCC

PATIENT
  Age: 22 Year
  Sex: Male
  Weight: 57 kg

DRUGS (1)
  1. ALEVE [Suspect]
     Indication: PRODUCT USED FOR UNKNOWN INDICATION
     Dosage: UNIT DOSE: 220 MG
     Route: 048
     Dates: start: 20101108

REACTIONS (1)
  - UNEVALUABLE EVENT [None]
